FAERS Safety Report 9388230 (Version 2)
Quarter: 2014Q2

REPORT INFORMATION
  Report Type: Spontaneous
  Country: US (occurrence: US)
  Receive Date: 20130708
  Receipt Date: 20140501
  Transmission Date: 20141212
  Serious: Yes (Death, Hospitalization)
  Sender: FDA-Public Use
  Company Number: US-GLAXOSMITHKLINE-A1030414A

PATIENT
  Age: 42 Year
  Sex: Female

DRUGS (1)
  1. AVANDIA [Suspect]
     Indication: PRODUCT USED FOR UNKNOWN INDICATION
     Dosage: 8MG TWICE PER DAY
     Route: 048
     Dates: start: 20000828, end: 20030623

REACTIONS (1)
  - Myocardial infarction [Fatal]
